FAERS Safety Report 7358619-4 (Version None)
Quarter: 2011Q1

REPORT INFORMATION
  Report Type: 
  Country: None (occurrence: None)
  Receive Date: 20110317
  Receipt Date: 20110314
  Transmission Date: 20110831
  Serious: Yes (Other)
  Sender: FDA-Public Use
  Company Number: US-ELI_LILLY_AND_COMPANY-US201102002665

PATIENT
  Age: 8 Year
  Sex: Male
  Weight: 24.943 kg

DRUGS (2)
  1. STRATTERA [Suspect]
     Indication: ATTENTION DEFICIT/HYPERACTIVITY DISORDER
     Dosage: 10 MG, DAILY (1/D)
     Route: 048
     Dates: start: 20091201, end: 20100201
  2. STRATTERA [Suspect]
     Dosage: 10 MG, DAILY (1/D)
     Route: 048
     Dates: start: 20100401, end: 20110121

REACTIONS (3)
  - HAEMATOCHEZIA [None]
  - INAPPROPRIATE SCHEDULE OF DRUG ADMINISTRATION [None]
  - CONSTIPATION [None]
